FAERS Safety Report 18539626 (Version 2)
Quarter: 2022Q1

REPORT INFORMATION
  Report Type: Spontaneous
  Country: PL (occurrence: PL)
  Receive Date: 20201124
  Receipt Date: 20220220
  Transmission Date: 20220423
  Serious: Yes (Hospitalization, Other)
  Sender: FDA-Public Use
  Company Number: PL-ACCORD-208688

PATIENT
  Age: 62 Year
  Sex: Male

DRUGS (3)
  1. METHOTREXATE [Suspect]
     Active Substance: METHOTREXATE
     Indication: Psoriasis
     Dosage: 7.5 MG, QW
     Route: 065
     Dates: start: 201803
  2. IXEKIZUMAB [Suspect]
     Active Substance: IXEKIZUMAB
     Indication: Psoriasis
     Dosage: UNK (FIRST DOSE)
     Route: 065
     Dates: start: 20190710, end: 201911
  3. REMICADE [Suspect]
     Active Substance: INFLIXIMAB
     Indication: Psoriasis
     Dosage: 5 MG PER KG BODY WEIGHT
     Route: 042
     Dates: start: 201803, end: 201906

REACTIONS (5)
  - Prostate cancer [Unknown]
  - Splinter haemorrhages [Unknown]
  - Nail disorder [Unknown]
  - Drug ineffective [Unknown]
  - Onycholysis [Unknown]
